FAERS Safety Report 6425811-2 (Version None)
Quarter: 2009Q4

REPORT INFORMATION
  Report Type: 
  Country: None (occurrence: None)
  Receive Date: 20091103
  Receipt Date: 20081117
  Transmission Date: 20100525
  Serious: No
  Sender: FDA-Public Use
  Company Number: US-ABBOTT-08P-163-0488096-00

PATIENT
  Sex: Female
  Weight: 49.032 kg

DRUGS (3)
  1. CLARITHROMYCIN [Suspect]
     Indication: PNEUMONIA
     Route: 048
     Dates: start: 20081103, end: 20081113
  2. KAPSOVIT [Concomitant]
     Indication: ROUTINE HEALTH MAINTENANCE
  3. CALCIUM-SANDOZ [Concomitant]
     Indication: ROUTINE HEALTH MAINTENANCE

REACTIONS (2)
  - DYSGEUSIA [None]
  - INSOMNIA [None]
